FAERS Safety Report 7058466-7 (Version None)
Quarter: 2010Q4

REPORT INFORMATION
  Report Type: 
  Country: None (occurrence: None)
  Receive Date: 20101021
  Receipt Date: 20101021
  Transmission Date: 20110411
  Serious: No
  Sender: FDA-Public Use
  Company Number: None

PATIENT
  Age: 32 Year
  Sex: Female
  Weight: 88 kg

DRUGS (4)
  1. PITOCIN [Suspect]
     Indication: ABNORMAL LABOUR
     Dosage: 20 UNITS/1000ML 20 MILLI/MIN IV
     Route: 042
     Dates: start: 20101001
  2. FENTANYL W/BUPIVACAINE [Concomitant]
  3. FENTANYL CITRATE [Concomitant]
  4. SODIUM CITRATE [Concomitant]

REACTIONS (5)
  - DRUG EXPOSURE DURING PREGNANCY [None]
  - DYSPNOEA [None]
  - PHARYNGEAL OEDEMA [None]
  - TACHYCARDIA [None]
  - TREMOR [None]
